FAERS Safety Report 7188488-7 (Version None)
Quarter: 2010Q4

REPORT INFORMATION
  Report Type: 
  Country: None (occurrence: None)
  Receive Date: 20101222
  Receipt Date: 20100721
  Transmission Date: 20110411
  Serious: No
  Sender: FDA-Public Use
  Company Number: US-AMGEN-KDL425989

PATIENT

DRUGS (7)
  1. ENBREL [Suspect]
     Indication: PRODUCT USED FOR UNKNOWN INDICATION
     Dosage: 50 MG, QWK
     Route: 058
  2. FAMOTIDINE [Concomitant]
     Dosage: 20 MG, UNK
  3. ALBUTEROL SULFATE [Concomitant]
     Dosage: 90 A?G, UNK
  4. FLUTICASONE PROPIONATE [Concomitant]
  5. SALMETEROL XINAFOATE [Concomitant]
  6. IBUPROFEN [Concomitant]
     Dosage: 400 MG, UNK
  7. MULTI-VITAMINS [Concomitant]
     Dosage: UNK UNK, UNK

REACTIONS (2)
  - INJECTION SITE HAEMORRHAGE [None]
  - INJECTION SITE NODULE [None]
